FAERS Safety Report 9099450 (Version 7)
Quarter: 2013Q3

REPORT INFORMATION
  Report Type: Report from Study
  Country: CO (occurrence: CO)
  Receive Date: 20130211
  Receipt Date: 20130729
  Transmission Date: 20140515
  Serious: Yes (Disabling)
  Sender: FDA-Public Use
  Company Number: CO-B.I. PHARMACEUTICALS,INC./RIDGEFIELD-2013-RU-00130BP

PATIENT
  Age: 77 Year
  Sex: Male
  Weight: 51 kg

DRUGS (4)
  1. TIOTROPIUM BROMIDE [Suspect]
     Indication: CHRONIC OBSTRUCTIVE PULMONARY DISEASE
     Dosage: 5 MCG
     Route: 045
     Dates: start: 20120920
  2. TIOTROPIUM BROMIDE [Suspect]
     Indication: CHRONIC OBSTRUCTIVE PULMONARY DISEASE
     Dosage: 5 MCG
     Route: 045
     Dates: start: 20120920
  3. TRIAL PROCEDURE [Suspect]
     Indication: CHRONIC OBSTRUCTIVE PULMONARY DISEASE
  4. HYOSCINE BUTYLBROMIDE [Concomitant]
     Indication: URINARY RETENTION
     Dosage: 0.9 ML
     Route: 030
     Dates: start: 20121223, end: 20121223

REACTIONS (1)
  - Benign prostatic hyperplasia [Recovered/Resolved with Sequelae]
